FAERS Safety Report 4876719-5 (Version None)
Quarter: 2006Q1

REPORT INFORMATION
  Report Type: 
  Country: None (occurrence: None)
  Receive Date: 20060110
  Receipt Date: 20060103
  Transmission Date: 20060701
  Serious: Yes (Hospitalization)
  Sender: FDA-Public Use
  Company Number: US-MERCK-0601USA00078

PATIENT
  Age: 30 Year
  Sex: Female

DRUGS (1)
  1. VIOXX [Suspect]
     Indication: VERTEBRAL INJURY
     Route: 048
     Dates: start: 20000801, end: 20010501

REACTIONS (4)
  - CHEST DISCOMFORT [None]
  - DIZZINESS [None]
  - HYPERTENSION [None]
  - MIGRAINE [None]
